FAERS Safety Report 5803468-9 (Version None)
Quarter: 2008Q3

REPORT INFORMATION
  Report Type: 
  Country: None (occurrence: None)
  Receive Date: 20080708
  Receipt Date: 20080625
  Transmission Date: 20090109
  Serious: Yes (Hospitalization)
  Sender: FDA-Public Use
  Company Number: PHBS2005JP01541

PATIENT
  Age: 42 Year
  Sex: Female

DRUGS (3)
  1. CYCLOSPORINE [Suspect]
     Indication: RENAL TRANSPLANT
     Dosage: UNK, UNK
     Route: 065
     Dates: start: 19880301, end: 20040101
  2. AZATHIOPRINE [Suspect]
     Indication: RENAL TRANSPLANT
     Dosage: UNK, UNK
     Dates: start: 19880301, end: 20040101
  3. PREDNISOLONE [Concomitant]
     Indication: RENAL TRANSPLANT
     Dates: start: 19880301

REACTIONS (5)
  - CHOLECYSTECTOMY [None]
  - LUNG NEOPLASM MALIGNANT [None]
  - LYMPHOMA [None]
  - PYREXIA [None]
  - SMALL INTESTINE CARCINOMA [None]
